FAERS Safety Report 24194853 (Version 2)
Quarter: 2024Q3

REPORT INFORMATION
  Report Type: Report from Study
  Country: CN (occurrence: CN)
  Receive Date: 20240809
  Receipt Date: 20240825
  Transmission Date: 20241017
  Serious: Yes (Hospitalization)
  Sender: JOHNSON AND JOHNSON
  Company Number: CN-JNJFOC-20240776667

PATIENT
  Age: 90 Year
  Sex: Male
  Weight: 56 kg

DRUGS (10)
  1. BEDAQUILINE [Suspect]
     Active Substance: BEDAQUILINE
     Indication: Tuberculosis
     Dosage: DATE AND TIME OF LAST?ADMINISTRATION- 24-MAY-2024
     Route: 048
     Dates: start: 20230510
  2. BEDAQUILINE [Suspect]
     Active Substance: BEDAQUILINE
     Dosage: FOLLOWING FOR 22 WEEKS
     Route: 048
  3. CONTEZOLID [Suspect]
     Active Substance: CONTEZOLID
     Indication: Tuberculosis
     Route: 050
  4. CYCLOSERINE [Suspect]
     Active Substance: CYCLOSERINE
     Indication: Tuberculosis
     Dosage: (0.25 G, TWICE A DAY, ONCE EVERY OTHER DAY)
     Route: 050
  5. MOXIFLOXACIN [Suspect]
     Active Substance: MOXIFLOXACIN
     Indication: Tuberculosis
     Route: 050
     Dates: start: 20230510
  6. POTASSIUM CHLORIDE [Concomitant]
     Active Substance: POTASSIUM CHLORIDE
     Indication: Blood potassium decreased
     Route: 048
     Dates: start: 20230508
  7. SPIRONOLACTONE [Concomitant]
     Active Substance: SPIRONOLACTONE
     Indication: Hypertension
     Route: 048
     Dates: start: 20230508, end: 20230516
  8. VALSARTAN [Concomitant]
     Active Substance: VALSARTAN
     Indication: Hypertension
     Route: 048
     Dates: start: 20230508
  9. ATORVASTATIN [Concomitant]
     Active Substance: ATORVASTATIN
     Indication: Coronary artery disease
     Route: 048
     Dates: start: 20230508
  10. FUROSEMIDE [Concomitant]
     Active Substance: FUROSEMIDE
     Route: 042
     Dates: start: 20230508

REACTIONS (4)
  - Electrocardiogram QT prolonged [Recovering/Resolving]
  - Haemoglobin decreased [Recovering/Resolving]
  - Sinus arrhythmia [Recovering/Resolving]
  - Blood creatinine increased [Recovering/Resolving]

NARRATIVE: CASE EVENT DATE: 20230620
